FAERS Safety Report 24872578 (Version 1)
Quarter: 2025Q1

REPORT INFORMATION
  Report Type: Spontaneous
  Country: US (occurrence: US)
  Receive Date: 20250122
  Receipt Date: 20250122
  Transmission Date: 20250409
  Serious: Yes (Other)
  Sender: COOPERSURGICAL
  Company Number: US-COOPERSURGICAL, INC.-2025CPS000210

PATIENT
  Sex: Female

DRUGS (1)
  1. PARAGARD T 380A [Suspect]
     Active Substance: COPPER
     Route: 015

REACTIONS (19)
  - Ovarian cyst [Recovered/Resolved]
  - Endometriosis [Recovered/Resolved]
  - Breast pain [Recovered/Resolved]
  - Fatigue [Recovered/Resolved]
  - Urinary tract infection [Recovered/Resolved]
  - Mood swings [Recovered/Resolved]
  - Diarrhoea [Recovered/Resolved]
  - Quality of life decreased [Recovered/Resolved]
  - Crying [Recovered/Resolved]
  - Mammogram abnormal [Recovered/Resolved]
  - Depression [Recovered/Resolved]
  - Anxiety [Recovered/Resolved]
  - Vaginal discharge [Recovered/Resolved]
  - Abdominal pain [Recovered/Resolved]
  - Heavy menstrual bleeding [Recovered/Resolved]
  - Dysmenorrhoea [Not Recovered/Not Resolved]
  - Bacterial vaginosis [Recovered/Resolved]
  - Abdominal distension [Recovered/Resolved]
  - Abdominal pain upper [Recovered/Resolved]
